FAERS Safety Report 6128006-5 (Version None)
Quarter: 2009Q1

REPORT INFORMATION
  Report Type: 
  Country: None (occurrence: None)
  Receive Date: 20090320
  Receipt Date: 20090320
  Transmission Date: 20090719
  Serious: Yes (Hospitalization, Other)
  Sender: FDA-Public Use
  Company Number: None

PATIENT
  Age: 36 Year
  Sex: Female
  Weight: 54.4316 kg

DRUGS (1)
  1. BOTOX [Suspect]
     Indication: SKIN COSMETIC PROCEDURE
     Dosage: 15 UNITS 3 MONTHS INJECTED ON 2/12/09
     Dates: start: 20090212

REACTIONS (15)
  - ABDOMINAL DISCOMFORT [None]
  - ANXIETY [None]
  - DRY EYE [None]
  - FATIGUE [None]
  - FEELING ABNORMAL [None]
  - FREQUENT BOWEL MOVEMENTS [None]
  - HEADACHE [None]
  - LETHARGY [None]
  - MENTAL IMPAIRMENT [None]
  - NARCOLEPSY [None]
  - PALPITATIONS [None]
  - PARAESTHESIA [None]
  - PERIPHERAL COLDNESS [None]
  - RASH PRURITIC [None]
  - SOMNOLENCE [None]
